FAERS Safety Report 6761713-X (Version None)
Quarter: 2010Q2

REPORT INFORMATION
  Report Type: 
  Country: None (occurrence: None)
  Receive Date: 20100503
  Receipt Date: 20100421
  Transmission Date: 20101027
  Serious: Yes (Death, Life-Threatening, Other)
  Sender: FDA-Public Use
  Company Number: THYM-1001296

PATIENT
  Age: 61 Year
  Sex: Female
  Weight: 41 kg

DRUGS (16)
  1. THYMOGLOBULIN [Suspect]
     Indication: APLASTIC ANAEMIA
     Dosage: 150 MG, QD, INTRAVENOUS
     Route: 042
     Dates: start: 20090511, end: 20090515
  2. LYMPHOGLOBULIN (ANTI-LYMPHOCYTE GLOBULIN (HORSE)) SOLUTION FOR INFUSIO [Suspect]
     Indication: APLASTIC ANAEMIA
     Dates: start: 20081201, end: 20081205
  3. MENATETRENONE (MENATETRENONE) [Concomitant]
  4. METENOLONE ACETATE (METENOLONE ACETATE) [Concomitant]
  5. PYRIDOXAL PHOSPHATE (PYRIDOXAL PHOSPHATE) [Concomitant]
  6. MAGNESIUM OXIDE (MAGNESIUM OXIDE) [Concomitant]
  7. CARBAZOCHROME SODIUM SULFONATE (CARBAZOCHROME SODIUM SULFONATE) [Concomitant]
  8. TRANEXAMIC ACID (TRANEXAMIC ACID) [Concomitant]
  9. CYCLOSPORINE [Concomitant]
  10. CYCLOSPORINE [Concomitant]
  11. CYCLOSPORINE [Concomitant]
  12. PENTAZOCINE HYDROCHLORIDE (PENTAZOCINE HYDROCHLORIDE) [Concomitant]
  13. METHYLPREDISOLONE SODIUM SUCCINATE (METHYLPREDISOLONE SODIUM SUCCINATE [Concomitant]
  14. CHLORPHENIRAMINE MELEATE (CHLORPHENIRAMINE MELEATE) [Concomitant]
  15. G-CSF (GRANULOCYTE COLONY STIMULATING FACTOR) [Concomitant]
  16. ANDROGENS [Concomitant]

REACTIONS (5)
  - BLOOD PRESSURE INCREASED [None]
  - CONVULSION [None]
  - ECLAMPSIA [None]
  - NO THERAPEUTIC RESPONSE [None]
  - SEPSIS [None]
